FAERS Safety Report 8463368 (Version 2)
Quarter: 2012Q4

REPORT INFORMATION
  Report Type: 
  Country: US (occurrence: US)
  Receive Date: 20120316
  Receipt Date: 20121015
  Transmission Date: 20130627
  Serious: Yes (Other)
  Sender: FDA-Public Use
  Company Number: US-ROCHE-1048501

PATIENT
  Sex: Male
  Weight: 83 kg

DRUGS (3)
  1. XELODA [Suspect]
     Indication: RECTAL CANCER
     Route: 048
     Dates: start: 20110802, end: 20110909
  2. XELODA [Suspect]
     Route: 048
     Dates: start: 20110802
  3. FERROUS SULFATE [Concomitant]
     Indication: IRON DEFICIENCY
     Route: 048

REACTIONS (2)
  - Neoplasm malignant [Unknown]
  - Drug ineffective [Unknown]
